FAERS Safety Report 17155698 (Version 2)
Quarter: 2020Q1

REPORT INFORMATION
  Report Type: Spontaneous
  Country: US (occurrence: US)
  Receive Date: 20191215
  Receipt Date: 20200125
  Transmission Date: 20200409
  Serious: No
  Sender: FDA-Public Use
  Company Number: US-AMGEN-USASP2019205831

PATIENT
  Age: 57 Year
  Sex: Male

DRUGS (2)
  1. REPATHA [Suspect]
     Active Substance: EVOLOCUMAB
     Dosage: UNK
     Route: 065
  2. REPATHA [Suspect]
     Active Substance: EVOLOCUMAB
     Indication: PRODUCT USED FOR UNKNOWN INDICATION
     Dosage: 140 MILLIGRAM, Q2WK
     Route: 065

REACTIONS (2)
  - Accidental exposure to product [Unknown]
  - Device use error [Unknown]

NARRATIVE: CASE EVENT DATE: 20191209
